FAERS Safety Report 10156748 (Version 1)
Quarter: 2014Q2

REPORT INFORMATION
  Report Type: Spontaneous
  Country: US (occurrence: None)
  Receive Date: 20140506
  Receipt Date: 20140506
  Transmission Date: 20141212
  Serious: Yes (Hospitalization)
  Sender: FDA-Public Use
  Company Number: None

PATIENT
  Age: 66 Year
  Sex: Male

DRUGS (6)
  1. FENTANYL [Suspect]
     Indication: PAIN
     Dosage: 25 UG, EVERY 72 HOURS, TOP
     Route: 061
     Dates: end: 20130320
  2. ACETAMINOPHEN [Concomitant]
  3. AMIODARONE [Concomitant]
  4. CALCIUM GLUCONATE [Concomitant]
  5. FENTANYL [Concomitant]
  6. SENNA [Concomitant]

REACTIONS (2)
  - Respiratory depression [None]
  - Post procedural complication [None]
